FAERS Safety Report 5377085-1 (Version None)
Quarter: 2007Q2

REPORT INFORMATION
  Report Type: 
  Country: None (occurrence: None)
  Receive Date: 20070628
  Receipt Date: 20070628
  Transmission Date: 20071010
  Serious: No
  Sender: FDA-Public Use
  Company Number: None

PATIENT
  Age: 28 Year
  Sex: Male
  Weight: 79.3795 kg

DRUGS (2)
  1. VITAMIN C 500MG SPRING VALLEY [Suspect]
     Indication: NASOPHARYNGITIS
     Dosage: 500MG 1 PO QD PO
     Route: 048
     Dates: start: 20070619, end: 20070619
  2. VITAMIN C 500MG SPRING VALLEY [Suspect]
     Indication: PROPHYLAXIS
     Dosage: 500MG 1 PO QD PO
     Route: 048
     Dates: start: 20070619, end: 20070619

REACTIONS (2)
  - ABDOMINAL PAIN UPPER [None]
  - DIARRHOEA [None]
